FAERS Safety Report 8419894-8 (Version None)
Quarter: 2012Q2

REPORT INFORMATION
  Report Type: 
  Country: None (occurrence: None)
  Receive Date: 20120607
  Receipt Date: 20120523
  Transmission Date: 20120825
  Serious: No
  Sender: FDA-Public Use
  Company Number: US-B.I. PHARMACEUTICALS,INC./RIDGEFIELD-2012-BP-11505BP

PATIENT
  Sex: Female

DRUGS (3)
  1. ZANTAC 150 [Suspect]
     Dates: start: 20120501
  2. ZANTAC 150 [Suspect]
     Indication: DYSPEPSIA
     Dosage: 150 MG
     Route: 048
     Dates: start: 20020101
  3. FLONASE [Concomitant]
     Indication: HYPERSENSITIVITY
     Route: 045

REACTIONS (6)
  - DIARRHOEA [None]
  - PAIN [None]
  - CONDITION AGGRAVATED [None]
  - INTENTIONAL DRUG MISUSE [None]
  - BACK PAIN [None]
  - INSOMNIA [None]
